FAERS Safety Report 18628393 (Version 1)
Quarter: 2020Q4

REPORT INFORMATION
  Report Type: Spontaneous
  Country: US (occurrence: US)
  Receive Date: 20201217
  Receipt Date: 20201217
  Transmission Date: 20210114
  Serious: No
  Sender: FDA-Public Use
  Company Number: US-PFIZER INC-2020494954

PATIENT
  Age: 30 Year
  Sex: Male

DRUGS (5)
  1. TRAZODONE [Suspect]
     Active Substance: TRAZODONE HYDROCHLORIDE
     Indication: SCHIZOAFFECTIVE DISORDER
     Dosage: 300 MG (2 TRAZODONE 150MG)
  2. SEROQUEL [Suspect]
     Active Substance: QUETIAPINE FUMARATE
     Indication: SCHIZOAFFECTIVE DISORDER
     Dosage: 800 MG (TWO 400MG OF SEROQUEL)
  3. TEMAZEPAM. [Suspect]
     Active Substance: TEMAZEPAM
     Indication: SCHIZOAFFECTIVE DISORDER
     Dosage: 30 MG, 1X/DAY (1 TEMAZEPAM 30MG AT NIGHT)
  4. EFFEXOR XR [Suspect]
     Active Substance: VENLAFAXINE HYDROCHLORIDE
     Indication: SCHIZOAFFECTIVE DISORDER
     Dosage: 150 MG
  5. EFFEXOR XR [Suspect]
     Active Substance: VENLAFAXINE HYDROCHLORIDE
     Dosage: 75 MG, 1X/DAY (IN THE MORNING)

REACTIONS (2)
  - Off label use [Unknown]
  - Blood testosterone decreased [Unknown]
